FAERS Safety Report 6933906-X (Version None)
Quarter: 2010Q3

REPORT INFORMATION
  Report Type: 
  Country: None (occurrence: None)
  Receive Date: 20100820
  Receipt Date: 20100813
  Transmission Date: 20110219
  Serious: Yes (Disabling, Other)
  Sender: FDA-Public Use
  Company Number: US-ROCHE-717743

PATIENT
  Sex: Male
  Weight: 77.6 kg

DRUGS (5)
  1. PEGASYS [Suspect]
     Indication: HEPATITIS C
     Route: 058
     Dates: start: 20100401, end: 20100701
  2. RIBAVIRIN [Suspect]
     Indication: HEPATITIS C
     Route: 065
  3. TOPROL-XL [Concomitant]
     Route: 048
  4. RESTORIL [Concomitant]
     Dosage: TAKEN AS NEEDED
     Route: 048
  5. REMERON [Concomitant]
     Dosage: TAKEN EVERY NIGHT AT BEDTIME
     Route: 048

REACTIONS (6)
  - CHEST PAIN [None]
  - FATIGUE [None]
  - HYPERTHYROIDISM [None]
  - IMPAIRED WORK ABILITY [None]
  - INFLUENZA LIKE ILLNESS [None]
  - SINUS TACHYCARDIA [None]
